FAERS Safety Report 21343922 (Version 1)
Quarter: 2022Q3

REPORT INFORMATION
  Report Type: Spontaneous
  Country: US (occurrence: US)
  Receive Date: 20220916
  Receipt Date: 20220916
  Transmission Date: 20221026
  Serious: No
  Sender: FDA-Public Use
  Company Number: US-SK LIFE SCIENCE, INC-SKPVG-2022-000415

PATIENT

DRUGS (6)
  1. XCOPRI [Suspect]
     Active Substance: CENOBAMATE
     Indication: Epilepsy
     Dosage: 12.5/25MG
     Route: 048
     Dates: start: 20220531
  2. XCOPRI [Suspect]
     Active Substance: CENOBAMATE
     Dosage: 100 MILLIGRAM, QD
     Route: 048
     Dates: end: 20220728
  3. KEPPRA [Concomitant]
     Active Substance: LEVETIRACETAM
     Indication: Product used for unknown indication
     Route: 065
  4. VITAMINS                           /00067501/ [Concomitant]
     Indication: Product used for unknown indication
     Route: 065
  5. EPIPEN [Concomitant]
     Active Substance: EPINEPHRINE
     Indication: Drug hypersensitivity
     Route: 065
  6. QULIPTA [Concomitant]
     Active Substance: ATOGEPANT
     Indication: Migraine
     Route: 065

REACTIONS (1)
  - Product use issue [Not Recovered/Not Resolved]

NARRATIVE: CASE EVENT DATE: 20220729
